FAERS Safety Report 6127430-4 (Version None)
Quarter: 2009Q1

REPORT INFORMATION
  Report Type: 
  Country: None (occurrence: None)
  Receive Date: 20090323
  Receipt Date: 20090310
  Transmission Date: 20090719
  Serious: Yes (Life-Threatening, Hospitalization)
  Sender: FDA-Public Use
  Company Number: DE-TEVA-187779ISR

PATIENT
  Age: 67 Year
  Sex: Female

DRUGS (6)
  1. SIMVASTATIN [Interacting]
     Indication: CORONARY ARTERY DISEASE
     Route: 048
     Dates: start: 20070101
  2. FUROSEMIDE [Interacting]
     Indication: HYPERTENSION
     Route: 048
  3. XIPAMIDE [Interacting]
     Indication: HYPERTENSION
     Route: 048
  4. ACETYLSALICYLIC ACID [Suspect]
     Indication: CORONARY ARTERY DISEASE
     Route: 048
     Dates: start: 20070101
  5. PHENPROCOUMON [Suspect]
     Indication: ATRIAL FIBRILLATION
     Route: 048
  6. PREDNISOLONE [Suspect]
     Indication: RHEUMATOID ARTHRITIS
     Route: 048
     Dates: start: 20081201

REACTIONS (2)
  - GASTROINTESTINAL HAEMORRHAGE [None]
  - HYPERGLYCAEMIA [None]
